FAERS Safety Report 9637619 (Version 7)
Quarter: 2014Q2

REPORT INFORMATION
  Report Type: Spontaneous
  Country: US (occurrence: US)
  Receive Date: 20131022
  Receipt Date: 20140423
  Transmission Date: 20141212
  Serious: Yes (Life-Threatening, Hospitalization, Disabling, Other)
  Sender: FDA-Public Use
  Company Number: US-009507513-1310USA009454

PATIENT
  Sex: Female
  Weight: 91.61 kg

DRUGS (10)
  1. JANUVIA [Suspect]
     Indication: TYPE 2 DIABETES MELLITUS
     Dosage: 100 MG, QD
     Route: 048
     Dates: start: 20070425, end: 20070624
  2. BYETTA [Suspect]
     Indication: TYPE 2 DIABETES MELLITUS
     Dosage: 5 MICRO-G/ML, BID
     Dates: start: 20070709, end: 20071107
  3. BYETTA [Suspect]
     Dosage: 250 MICROGRAM, BID
     Dates: start: 20070802, end: 20080627
  4. LANTUS [Concomitant]
     Indication: TYPE 2 DIABETES MELLITUS
     Dosage: 100 U/ML, 55 UNITS HS
  5. NOVOLOG [Concomitant]
     Indication: TYPE 2 DIABETES MELLITUS
     Dosage: 100 UNIT/ML, TID
  6. VYTORIN [Concomitant]
     Indication: BLOOD CHOLESTEROL INCREASED
     Dosage: 10MG-40MG, QD
     Route: 048
     Dates: start: 2006
  7. SYNTHROID [Concomitant]
     Indication: THYROID DISORDER
     Dosage: 0.125 MG, QD
     Dates: start: 2000
  8. GLUCOPHAGE [Concomitant]
     Indication: TYPE 2 DIABETES MELLITUS
  9. GLIPIZIDE [Concomitant]
     Indication: TYPE 2 DIABETES MELLITUS
  10. NORVASC [Concomitant]
     Indication: ESSENTIAL HYPERTENSION

REACTIONS (93)
  - Adenocarcinoma pancreas [Unknown]
  - Metastasis [Unknown]
  - Metastases to liver [Unknown]
  - Coronary arterial stent insertion [Unknown]
  - Infection [Unknown]
  - Parathyroidectomy [Unknown]
  - Sinus operation [Unknown]
  - Nephrolithiasis [Unknown]
  - Hypomagnesaemia [Unknown]
  - Hypokalaemia [Unknown]
  - Hypophosphataemia [Unknown]
  - Renal failure [Unknown]
  - Pancreatitis [Recovered/Resolved]
  - Diarrhoea [Unknown]
  - Arteriosclerosis coronary artery [Unknown]
  - Trigger finger [Unknown]
  - Neoplasm [Unknown]
  - Soft tissue inflammation [Recovered/Resolved]
  - Soft tissue haemorrhage [Recovered/Resolved]
  - Splenic vein occlusion [Unknown]
  - Hyperlipidaemia [Unknown]
  - Gastric varices [Unknown]
  - Ovarian vein thrombosis [Unknown]
  - Nephrolithiasis [Unknown]
  - Nephrolithiasis [Unknown]
  - Dehydration [Unknown]
  - Pulmonary mass [Recovered/Resolved]
  - Lymphadenopathy [Recovered/Resolved]
  - Arteriosclerosis coronary artery [Unknown]
  - Aortic arteriosclerosis [Unknown]
  - Pleural fibrosis [Unknown]
  - Arterial disorder [Unknown]
  - Spinal osteoarthritis [Unknown]
  - Renal cyst [Unknown]
  - Thyroid disorder [Unknown]
  - Pulmonary mass [Unknown]
  - Lymphadenopathy [Recovering/Resolving]
  - Radiotherapy [Unknown]
  - White blood cell count decreased [Unknown]
  - Blepharoplasty [Unknown]
  - Eyelid disorder [Unknown]
  - Angioplasty [Unknown]
  - Calculus ureteric [Unknown]
  - Dysgeusia [Unknown]
  - Neutropenia [Unknown]
  - Chronic obstructive pulmonary disease [Not Recovered/Not Resolved]
  - Dyspnoea [Unknown]
  - Sinus operation [Not Recovered/Not Resolved]
  - Bronchitis chronic [Not Recovered/Not Resolved]
  - Ear operation [Unknown]
  - Hiatus hernia [Unknown]
  - Large intestine polyp [Unknown]
  - Cataract operation [Unknown]
  - Cataract [Unknown]
  - Varicose vein [Unknown]
  - Diverticulitis [Unknown]
  - Appendicectomy [Unknown]
  - Depression [Unknown]
  - Nephropathy [Not Recovered/Not Resolved]
  - Nephropathy [Unknown]
  - Decreased appetite [Not Recovered/Not Resolved]
  - Insomnia [Unknown]
  - Cough [Recovered/Resolved]
  - Asthma [Not Recovered/Not Resolved]
  - Anaemia [Recovering/Resolving]
  - Weight decreased [Unknown]
  - Visual acuity reduced [Unknown]
  - Chest pain [Unknown]
  - Joint stiffness [Unknown]
  - Depression [Unknown]
  - Hypothyroidism [Unknown]
  - Retinal detachment [Unknown]
  - Osteoarthritis [Unknown]
  - Chronic sinusitis [Not Recovered/Not Resolved]
  - Gastrooesophageal reflux disease [Unknown]
  - Haemorrhoids [Unknown]
  - Diverticulum [Unknown]
  - Hypertriglyceridaemia [Unknown]
  - Varicose vein operation [Unknown]
  - Musculoskeletal chest pain [Unknown]
  - Psoriasis [Unknown]
  - Radiculitis brachial [Unknown]
  - Osteoarthritis [Unknown]
  - Rosacea [Unknown]
  - Retinopexy [Unknown]
  - Hyperparathyroidism secondary [Unknown]
  - Pyrexia [Unknown]
  - Nasal congestion [Unknown]
  - Neck pain [Unknown]
  - Cough [Unknown]
  - Upper respiratory tract infection [Unknown]
  - Back pain [Not Recovered/Not Resolved]
  - Nausea [Unknown]
